FAERS Safety Report 9632469 (Version 2)
Quarter: 2013Q4

REPORT INFORMATION
  Report Type: Report from Study
  Country: NO (occurrence: NO)
  Receive Date: 20131018
  Receipt Date: 20131018
  Transmission Date: 20140711
  Serious: Yes (Life-Threatening, Other)
  Sender: FDA-Public Use
  Company Number: NO-SA-CLOF-1002707

PATIENT
  Age: 63 Year
  Sex: Male
  Weight: 70 kg

DRUGS (3)
  1. CLOFARABINE [Suspect]
     Indication: ACUTE MYELOID LEUKAEMIA
     Dosage: 18 MG, UNK, INDUCTION CYCLE 1
     Route: 042
     Dates: start: 20130523, end: 20130527
  2. CYTARABINE [Suspect]
     Indication: ACUTE MYELOID LEUKAEMIA
     Dosage: 360 MG, UNK, INDUCTION CYCLE 1
     Route: 042
     Dates: start: 20130523
  3. IDARUBICIN [Suspect]
     Indication: ACUTE MYELOID LEUKAEMIA
     Dosage: 22 MG, UNK, INDUCTION CYCLE 1
     Route: 042
     Dates: start: 20130523

REACTIONS (1)
  - Neutropenic colitis [Recovered/Resolved]
